FAERS Safety Report 12650265 (Version 1)
Quarter: 2016Q3

REPORT INFORMATION
  Report Type: Spontaneous
  Country: US (occurrence: US)
  Receive Date: 20160813
  Receipt Date: 20160813
  Transmission Date: 20161109
  Serious: No
  Sender: FDA-Public Use
  Company Number: US-SHIRE-US201610082

PATIENT
  Sex: Male
  Weight: 83.9 kg

DRUGS (4)
  1. AGRYLIN [Suspect]
     Active Substance: ANAGRELIDE HYDROCHLORIDE
     Dosage: 1.5 MG (ALTERNATING WITH 2 MG), 1X/DAY:QD
     Route: 048
  2. AGRYLIN [Suspect]
     Active Substance: ANAGRELIDE HYDROCHLORIDE
     Dosage: 0.5 MG, 1X/DAY:QD
     Route: 048
  3. AGRYLIN [Suspect]
     Active Substance: ANAGRELIDE HYDROCHLORIDE
     Indication: THROMBOCYTOSIS
     Dosage: 3 MG, 1X/DAY:QD
     Route: 048
     Dates: start: 2015
  4. CLONAZEPAM. [Concomitant]
     Active Substance: CLONAZEPAM
     Indication: INSOMNIA
     Dosage: UNK, UNKNOWN
     Route: 048

REACTIONS (5)
  - Abdominal pain [Unknown]
  - Oedema peripheral [Unknown]
  - Dyspepsia [Unknown]
  - Hypertension [Unknown]
  - Dizziness [Unknown]
